FAERS Safety Report 11459579 (Version 1)
Quarter: 2015Q3

REPORT INFORMATION
  Report Type: Spontaneous
  Country: None (occurrence: US)
  Receive Date: 20150904
  Receipt Date: 20150904
  Transmission Date: 20151125
  Serious: No
  Sender: FDA-Public Use
  Company Number: US-TARO-2014TAR00438

PATIENT
  Sex: Female

DRUGS (3)
  1. NUMEROUS UNSPECIFIED DRUGS [Concomitant]
  2. NUMEROUS UNSPECIFIED HERBAL SUPPLEMENTS [Concomitant]
  3. WARFARIN [Suspect]
     Active Substance: WARFARIN

REACTIONS (1)
  - Drug ineffective [Unknown]
